FAERS Safety Report 20349669 (Version 2)
Quarter: 2022Q1

REPORT INFORMATION
  Report Type: Spontaneous
  Country: US (occurrence: US)
  Receive Date: 20220119
  Receipt Date: 20220204
  Transmission Date: 20220424
  Serious: Yes (Death, Other)
  Sender: FDA-Public Use
  Company Number: US-REGENERON PHARMACEUTICALS, INC.-2022-16092

PATIENT

DRUGS (1)
  1. EYLEA [Suspect]
     Active Substance: AFLIBERCEPT
     Indication: Diabetic retinopathy
     Dosage: 2MG/0.05ML, Q5W BOTH EYES
     Dates: start: 20191011, end: 20210927

REACTIONS (1)
  - Death [Fatal]

NARRATIVE: CASE EVENT DATE: 20211009
